FAERS Safety Report 6210761-7 (Version None)
Quarter: 2009Q2

REPORT INFORMATION
  Report Type: 
  Country: None (occurrence: None)
  Receive Date: 20090527
  Receipt Date: 20090513
  Transmission Date: 20091009
  Serious: Yes (Hospitalization, Disabling)
  Sender: FDA-Public Use
  Company Number: 1-18446170

PATIENT
  Age: 76 Year
  Sex: Female
  Weight: 62.5964 kg

DRUGS (8)
  1. AMIODARONE HCL [Suspect]
     Indication: ATRIAL FIBRILLATION
     Dosage: ORAL
     Route: 048
     Dates: start: 20010101, end: 20070101
  2. AMIODARONE INTRAVENOUS [Suspect]
     Indication: ATRIAL FIBRILLATION
     Dosage: INTRAVENOUS
     Route: 042
     Dates: start: 20070613, end: 20070101
  3. WARFARIN [Concomitant]
  4. LEVAQUIN [Concomitant]
  5. CODEINE SUL TAB [Concomitant]
  6. FENTANYL [Concomitant]
  7. OXYCONTIN (OXYCODONE HCL CONTROLLED-RELEASE) [Concomitant]
  8. FUROSEMIDE [Concomitant]

REACTIONS (11)
  - ANOREXIA [None]
  - ATELECTASIS [None]
  - BRONCHITIS BACTERIAL [None]
  - DIZZINESS [None]
  - DYSPNOEA [None]
  - EATING DISORDER [None]
  - FATIGUE [None]
  - FIBROSIS [None]
  - GASTROINTESTINAL DISORDER [None]
  - NAUSEA [None]
  - WEIGHT DECREASED [None]
